FAERS Safety Report 9145973 (Version 1)
Quarter: 2013Q1

REPORT INFORMATION
  Report Type: Spontaneous
  Country: JP (occurrence: JP)
  Receive Date: 20130307
  Receipt Date: 20130307
  Transmission Date: 20140127
  Serious: Yes (Other)
  Sender: FDA-Public Use
  Company Number: JP-NOVOPROD-372329

PATIENT
  Age: 70 Year
  Sex: Male

DRUGS (1)
  1. VICTOZA HIKACHU INJECTION [Suspect]
     Indication: TYPE 2 DIABETES MELLITUS
     Dosage: UNK
     Route: 065
     Dates: start: 201210

REACTIONS (3)
  - Colon cancer [Unknown]
  - Anaemia [Unknown]
  - Dizziness [Unknown]
